FAERS Safety Report 17206089 (Version 1)
Quarter: 2020Q1

REPORT INFORMATION
  Report Type: Spontaneous
  Country: US (occurrence: US)
  Receive Date: 20191226
  Receipt Date: 20191226
  Transmission Date: 20200409
  Serious: Yes (Death)
  Sender: FDA-Public Use
  Company Number: None

PATIENT
  Age: 86 Year
  Sex: Female
  Weight: 92.5 kg

DRUGS (1)
  1. RELISTOR [Suspect]
     Active Substance: METHYLNALTREXONE BROMIDE
     Indication: CONSTIPATION
     Route: 058
     Dates: start: 20191004, end: 20191004

REACTIONS (6)
  - Intestinal perforation [None]
  - Post procedural complication [None]
  - Surgical procedure repeated [None]
  - Peritonitis [None]
  - Stent placement [None]
  - Pneumoperitoneum [None]

NARRATIVE: CASE EVENT DATE: 20191010
